FAERS Safety Report 6031644-1 (Version None)
Quarter: 2009Q1

REPORT INFORMATION
  Report Type: 
  Country: None (occurrence: None)
  Receive Date: 20090108
  Receipt Date: 20081229
  Transmission Date: 20090719
  Serious: Yes (Death)
  Sender: FDA-Public Use
  Company Number: NL-WATSON-2008-07597

PATIENT
  Age: 91 Year
  Sex: Male

DRUGS (6)
  1. ENALAPRIL MALEATE (WATSON LABORATORIES) [Suspect]
     Indication: CARDIAC FAILURE
     Dosage: 5 MG, DAILY
     Route: 048
     Dates: start: 20010101
  2. ENALAPRIL MALEATE (WATSON LABORATORIES) [Suspect]
     Dosage: UNK
  3. SPIRONOLACTONE/HYDROCHLOROTHIAZIDE 25/25 (WATSON LABORATORIES) [Suspect]
     Indication: CARDIAC FAILURE
     Dosage: 25 MG, DAILY
     Route: 048
     Dates: start: 20060801
  4. DIGOXIN [Suspect]
     Indication: ATRIAL FIBRILLATION
     Dosage: 0.0625 MG DAILY
     Route: 048
  5. FUROSEMIDE [Concomitant]
     Indication: CARDIAC FAILURE
     Dosage: UNK
     Dates: start: 20010101
  6. ACENOCOUMAROL [Concomitant]
     Indication: CARDIAC FAILURE
     Dosage: UNK
     Dates: start: 20060801

REACTIONS (3)
  - HYPERKALAEMIA [None]
  - LOSS OF CONSCIOUSNESS [None]
  - MEDICATION ERROR [None]
